FAERS Safety Report 12490707 (Version 5)
Quarter: 2021Q2

REPORT INFORMATION
  Report Type: Report from Study
  Country: US (occurrence: US)
  Receive Date: 20160622
  Receipt Date: 20210611
  Transmission Date: 20210716
  Serious: No
  Sender: FDA-Public Use
  Company Number: US-JAZZ-2015-US-021031

PATIENT
  Age: 29 Year
  Sex: Male
  Weight: 80.73 kg

DRUGS (2)
  1. XYREM [Suspect]
     Active Substance: SODIUM OXYBATE
     Indication: NARCOLEPSY
     Dosage: 2.25 GRAM
     Route: 048
     Dates: start: 20151202, end: 20151202
  2. XYREM [Suspect]
     Active Substance: SODIUM OXYBATE
     Indication: CATAPLEXY

REACTIONS (4)
  - Sleep apnoea syndrome [Unknown]
  - Feeling abnormal [Unknown]
  - Sleep apnoea syndrome [Not Recovered/Not Resolved]
  - Unevaluable event [Unknown]

NARRATIVE: CASE EVENT DATE: 20151202
